FAERS Safety Report 23684946 (Version 1)
Quarter: 2024Q1

REPORT INFORMATION
  Report Type: Spontaneous
  Country: DE (occurrence: DE)
  Receive Date: 20240328
  Receipt Date: 20240328
  Transmission Date: 20240409
  Serious: Yes (Other)
  Sender: FDA-Public Use
  Company Number: DE-WW-2024-0136

PATIENT
  Sex: Male

DRUGS (1)
  1. ESZOPICLONE [Suspect]
     Active Substance: ESZOPICLONE
     Indication: Insomnia
     Route: 048
     Dates: start: 202401

REACTIONS (4)
  - Renal impairment [Unknown]
  - Glomerular filtration rate decreased [Unknown]
  - Pollakiuria [Unknown]
  - Renal pain [Unknown]
